FAERS Safety Report 7549662-0 (Version None)
Quarter: 2011Q2

REPORT INFORMATION
  Report Type: 
  Country: None (occurrence: None)
  Receive Date: 20110615
  Receipt Date: 20110606
  Transmission Date: 20111010
  Serious: Yes (Hospitalization, Other)
  Sender: FDA-Public Use
  Company Number: US-ALEXION-A201100682

PATIENT
  Sex: Female

DRUGS (12)
  1. SOLIRIS [Suspect]
     Indication: PAROXYSMAL NOCTURNAL HAEMOGLOBINURIA
     Dosage: 900 MG, QW
     Route: 042
  2. ALBUTEROL SULFATE AUTOHALER [Suspect]
     Route: 055
  3. FERROUS SULFATE TAB [Concomitant]
     Dosage: 325 MG, QD
  4. OMEPRAZOLE [Concomitant]
     Dosage: 20 MG, QD
  5. FORTICAL [Concomitant]
     Dosage: 2000 IU, QD
  6. FOLIC ACID [Concomitant]
     Dosage: 1 MG, QD
  7. CYCLOBENZAPRINE [Concomitant]
     Dosage: 10 MG, QD
  8. SPIRONOLACTONE [Concomitant]
     Dosage: 25 MG, QD
  9. SIMVASTATIN [Concomitant]
     Dosage: 20 MG, QD
  10. SYNTHROID [Concomitant]
     Dosage: 25 UG, QD
  11. ALENDRONATE SODIUM [Concomitant]
     Dosage: 70 MG, QD
  12. VITAMIN D [Concomitant]
     Dosage: 50000 IU, QW

REACTIONS (16)
  - BLOOD GLUCOSE INCREASED [None]
  - HYPERSENSITIVITY [None]
  - HEPATIC ENZYME INCREASED [None]
  - LACERATION [None]
  - MYALGIA [None]
  - BLOOD MAGNESIUM DECREASED [None]
  - VAGINAL HAEMORRHAGE [None]
  - PAIN [None]
  - PLATELET COUNT DECREASED [None]
  - ARTHRALGIA [None]
  - PNEUMONIA [None]
  - PYREXIA [None]
  - PRODUCTIVE COUGH [None]
  - DYSPNOEA [None]
  - VOMITING [None]
  - ABDOMINAL PAIN [None]
